FAERS Safety Report 18022487 (Version 3)
Quarter: 2020Q3

REPORT INFORMATION
  Report Type: Spontaneous
  Country: IE (occurrence: IE)
  Receive Date: 20200715
  Receipt Date: 20200721
  Transmission Date: 20201103
  Serious: Yes (Death)
  Sender: FDA-Public Use
  Company Number: IE-ROCHE-2639342

PATIENT
  Sex: Female

DRUGS (1)
  1. TECENTRIQ [Suspect]
     Active Substance: ATEZOLIZUMAB
     Indication: TRIPLE NEGATIVE BREAST CANCER
     Dosage: RECEIVED ONE CYCLE THEN WITHDREW FROM ACTIVE TREATMENT
     Route: 065
     Dates: start: 20200630

REACTIONS (1)
  - Death [Fatal]
